FAERS Safety Report 5927023-5 (Version None)
Quarter: 2008Q4

REPORT INFORMATION
  Report Type: 
  Country: None (occurrence: None)
  Receive Date: 20081022
  Receipt Date: 20081007
  Transmission Date: 20090506
  Serious: Yes (Other)
  Sender: FDA-Public Use
  Company Number: FR-TYCO HEALTHCARE/MALLINCKRODT-T200801716

PATIENT

DRUGS (1)
  1. HEXABRIX [Suspect]
     Indication: ANGIOGRAM CEREBRAL
     Dosage: 18 ML, SINGLE
     Dates: start: 20080722, end: 20080722

REACTIONS (8)
  - COUGH [None]
  - ERYTHEMA [None]
  - EYE PAIN [None]
  - FEELING HOT [None]
  - FLUSHING [None]
  - OCULAR HYPERAEMIA [None]
  - ORAL DISCOMFORT [None]
  - OXYGEN SATURATION DECREASED [None]
